FAERS Safety Report 6286676-5 (Version None)
Quarter: 2009Q3

REPORT INFORMATION
  Report Type: 
  Country: None (occurrence: None)
  Receive Date: 20090728
  Receipt Date: 20090717
  Transmission Date: 20100115
  Serious: Yes (Hospitalization)
  Sender: FDA-Public Use
  Company Number: PHHY2009DE29843

PATIENT
  Age: 52 Year
  Sex: Female
  Weight: 66 kg

DRUGS (10)
  1. SANDIMMUNE [Suspect]
     Dosage: 130 MG, BID
     Route: 048
     Dates: start: 20090301, end: 20090707
  2. SANDIMMUNE [Suspect]
     Dosage: 110 MG, BID
     Route: 048
     Dates: start: 20090711
  3. CELLCEPT [Suspect]
     Indication: RENAL TRANSPLANT
     Dosage: 500 MG, BID
     Route: 048
     Dates: start: 20090301
  4. PREDNISOLONE [Suspect]
     Indication: RENAL TRANSPLANT
     Dosage: 10 MG, QD
     Route: 048
     Dates: start: 20090301
  5. BISOBETA [Concomitant]
     Indication: HYPERTENSION
     Dosage: 5 MG, QD
     Route: 048
     Dates: start: 20030101
  6. COTRIM [Concomitant]
     Indication: RENAL TRANSPLANT
     Dosage: 1 DF, BID
     Route: 048
     Dates: start: 20090301
  7. FURORESE [Concomitant]
     Indication: HYPERTENSION
     Dosage: 20 MG, BID
     Route: 048
     Dates: start: 20030101
  8. L-THYROXIN [Concomitant]
     Indication: HYPOTHYROIDISM
     Dosage: 100 UG, QD
     Route: 048
  9. PANTOZOL [Concomitant]
     Indication: RENAL TRANSPLANT
     Dosage: 40 MG, QD
     Route: 048
     Dates: start: 20090301
  10. VALCYTE [Concomitant]
     Indication: RENAL TRANSPLANT
     Dosage: 450 MG, QD
     Route: 048
     Dates: start: 20090301

REACTIONS (9)
  - ABDOMINAL PAIN [None]
  - ACTIVATED PARTIAL THROMBOPLASTIN TIME SHORTENED [None]
  - BLOOD CREATININE INCREASED [None]
  - DIARRHOEA [None]
  - GASTRITIS [None]
  - GASTROENTERITIS [None]
  - IMMUNOSUPPRESSANT DRUG LEVEL INCREASED [None]
  - NAUSEA [None]
  - VOMITING [None]
